FAERS Safety Report 6717085-X (Version None)
Quarter: 2010Q2

REPORT INFORMATION
  Report Type: 
  Country: None (occurrence: None)
  Receive Date: 20100510
  Receipt Date: 20100510
  Transmission Date: 20101027
  Serious: No
  Sender: FDA-Public Use
  Company Number: None

PATIENT
  Age: 4 Year
  Sex: Female

DRUGS (2)
  1. CHILDREN'S ZYRTEC ALLERGY [Suspect]
     Indication: NASAL TURBINATE HYPERTROPHY
     Dosage: 1 TSP. ONCE DAILY PO
     Route: 048
     Dates: start: 20100422, end: 20100423
  2. CHILDREN'S ZYRTEC ALLERGY [Suspect]
     Indication: RHINITIS ALLERGIC
     Dosage: 1 TSP. ONCE DAILY PO
     Route: 048
     Dates: start: 20100422, end: 20100423

REACTIONS (7)
  - DYSPNOEA [None]
  - HYPERSOMNIA [None]
  - LABORATORY TEST ABNORMAL [None]
  - LETHARGY [None]
  - PRODUCT CONTAMINATION [None]
  - PRODUCT QUALITY ISSUE [None]
  - VOMITING [None]
